FAERS Safety Report 8543797-1 (Version None)
Quarter: 2012Q3

REPORT INFORMATION
  Report Type: 
  Country: None (occurrence: None)
  Receive Date: 20120727
  Receipt Date: 20120718
  Transmission Date: 20120928
  Serious: Yes (Other)
  Sender: FDA-Public Use
  Company Number: CA-PFIZER INC-2012173128

PATIENT
  Age: 60 Year
  Sex: Female

DRUGS (1)
  1. VARENICLINE TARTRATE [Suspect]
     Dosage: 0.5 MG, 2X/DAY
     Dates: start: 20120703

REACTIONS (6)
  - HYPERSOMNIA [None]
  - FALL [None]
  - ACCIDENT [None]
  - GINGIVAL DISORDER [None]
  - DISCOMFORT [None]
  - DYSGEUSIA [None]
